FAERS Safety Report 4343545-5 (Version None)
Quarter: 2004Q2

REPORT INFORMATION
  Report Type: 
  Country: None (occurrence: None)
  Receive Date: 20040421
  Receipt Date: 20040421
  Transmission Date: 20050107
  Serious: No
  Sender: FDA-Public Use
  Company Number: None

PATIENT
  Sex: 0

DRUGS (2)
  1. PROPOFOL [Suspect]
  2. POTASSIUM CHLORIDE [Suspect]

REACTIONS (2)
  - MEDICATION ERROR [None]
  - SOMNOLENCE [None]
